FAERS Safety Report 13399617 (Version 1)
Quarter: 2017Q2

REPORT INFORMATION
  Report Type: Spontaneous
  Country: US (occurrence: US)
  Receive Date: 20170404
  Receipt Date: 20170404
  Transmission Date: 20170830
  Serious: Yes (Life-Threatening)
  Sender: FDA-Public Use
  Company Number: US-DIAGNOSTIC GREEN GMBH-1064959

PATIENT
  Age: 53 Year
  Sex: Male
  Weight: 90 kg

DRUGS (2)
  1. INDOCYANINE GREEN FOR INJECTION USP, 25 MG [Suspect]
     Active Substance: INDOCYANINE GREEN
     Indication: NEPHRECTOMY
     Route: 040
  2. MANNITOL. [Concomitant]
     Active Substance: MANNITOL
     Route: 042

REACTIONS (2)
  - Anaphylactic shock [Recovered/Resolved]
  - Ventricular tachycardia [None]
